FAERS Safety Report 23721440 (Version 1)
Quarter: 2024Q2

REPORT INFORMATION
  Report Type: Spontaneous
  Country: ES (occurrence: ES)
  Receive Date: 20240409
  Receipt Date: 20240409
  Transmission Date: 20240716
  Serious: Yes (Other)
  Sender: FDA-Public Use
  Company Number: None

PATIENT
  Age: 48 Year
  Sex: Male

DRUGS (2)
  1. CIPROFLOXACIN [Suspect]
     Active Substance: CIPROFLOXACIN
     Indication: Prostatitis
     Dosage: CIPROFLOXACINO (2049A)
     Route: 048
     Dates: start: 20240223, end: 20240223
  2. CEFUROXIME [Concomitant]
     Active Substance: CEFUROXIME
     Indication: Prostatism
     Dosage: CEFUROXIMA (828A)
     Route: 065
     Dates: start: 20240218, end: 20240222

REACTIONS (2)
  - Eyelid oedema [Recovered/Resolved]
  - Respiratory distress [Recovered/Resolved]

NARRATIVE: CASE EVENT DATE: 20240223
